FAERS Safety Report 4733206-2 (Version None)
Quarter: 2005Q3

REPORT INFORMATION
  Report Type: 
  Country: None (occurrence: None)
  Receive Date: 20050801
  Receipt Date: 20050801
  Transmission Date: 20060218
  Serious: Yes (Hospitalization)
  Sender: FDA-Public Use
  Company Number: None

PATIENT
  Age: 97 Year
  Sex: Male

DRUGS (6)
  1. LOPERAMIDE [Suspect]
     Indication: DIARRHOEA
     Dosage: 2 BID PRN
     Dates: start: 20050408
  2. ZITHROMAX [Concomitant]
  3. GUAIFENESIN [Concomitant]
  4. FELODIPINE [Concomitant]
  5. HYOSCYAMINE [Concomitant]
  6. M.V.I. [Concomitant]

REACTIONS (1)
  - ILEUS [None]
